FAERS Safety Report 14889660 (Version 2)
Quarter: 2018Q2

REPORT INFORMATION
  Report Type: Spontaneous
  Country: US (occurrence: US)
  Receive Date: 20180514
  Receipt Date: 20180522
  Transmission Date: 20180711
  Serious: No
  Sender: FDA-Public Use
  Company Number: US-009507513-1805USA002907

PATIENT
  Age: 10 Year
  Sex: Female

DRUGS (1)
  1. ASMANEX [Suspect]
     Active Substance: MOMETASONE FUROATE
     Dosage: 220 MICROGRAM (1 PUFF) DAILY
     Route: 055

REACTIONS (4)
  - Physical product label issue [Unknown]
  - Drug dose omission [Unknown]
  - No adverse event [Unknown]
  - Incorrect dose administered [Unknown]
